FAERS Safety Report 12782342 (Version 4)
Quarter: 2017Q1

REPORT INFORMATION
  Report Type: Report from Study
  Country: CN (occurrence: CN)
  Receive Date: 20160927
  Receipt Date: 20170322
  Transmission Date: 20170428
  Serious: Yes (Hospitalization, Other)
  Sender: FDA-Public Use
  Company Number: CN-ROCHE-1735675

PATIENT
  Sex: Male
  Weight: 58 kg

DRUGS (1)
  1. AVASTIN [Suspect]
     Active Substance: BEVACIZUMAB
     Indication: COLON CANCER
     Route: 041
     Dates: start: 20150702

REACTIONS (8)
  - Abdominal hernia [Recovering/Resolving]
  - Liver disorder [Unknown]
  - Abdominal distension [Recovering/Resolving]
  - Nasopharyngitis [Recovering/Resolving]
  - Pyrexia [Recovering/Resolving]
  - Intestinal mass [Recovering/Resolving]
  - Ascites [Recovering/Resolving]
  - Hepatic neoplasm [Unknown]
